FAERS Safety Report 8784108 (Version 1)
Quarter: 2012Q4

REPORT INFORMATION
  Report Type: Spontaneous
  Country: US (occurrence: None)
  Receive Date: 20120829
  Receipt Date: 20120829
  Transmission Date: 20130627
  Serious: Yes (Hospitalization)
  Sender: FDA-Public Use
  Company Number: BENZ20120003

PATIENT
  Age: 27 Year
  Sex: Male

DRUGS (3)
  1. BENZTROPINE MESYLATE [Suspect]
     Indication: MENTAL DISORDER
  2. OLANZAPINE [Suspect]
     Indication: MENTAL DISORDER
  3. BUPROPION (BUPROPION)(BUPROPION) [Concomitant]

REACTIONS (6)
  - Constipation [None]
  - Nausea [None]
  - Vomiting [None]
  - Abdominal distension [None]
  - Haematochezia [None]
  - Colitis ischaemic [None]
